FAERS Safety Report 10854183 (Version 1)
Quarter: 2015Q1

REPORT INFORMATION
  Report Type: Spontaneous
  Country: US (occurrence: None)
  Receive Date: 20150218
  Receipt Date: 20150218
  Transmission Date: 20150721
  Serious: Yes (Other)
  Sender: FDA-Public Use
  Company Number: None

PATIENT
  Age: 48 Year
  Sex: Female
  Weight: 60.33 kg

DRUGS (1)
  1. HYLENEX RECOMBINANT [Suspect]
     Active Substance: HYALURONIDASE (HUMAN RECOMBINANT)
     Indication: SKIN DISORDER
     Dosage: 1X, 6WKS APART, INJECTED INTO FACE AREA
     Dates: start: 20150106, end: 20150210

REACTIONS (12)
  - Wound secretion [None]
  - Pain [None]
  - Angioedema [None]
  - Skin ulcer [None]
  - Burning sensation [None]
  - Tachycardia [None]
  - Anaphylactic reaction [None]
  - Rash [None]
  - Urticaria [None]
  - Blood pressure fluctuation [None]
  - Flushing [None]
  - Swelling face [None]

NARRATIVE: CASE EVENT DATE: 20150210
